FAERS Safety Report 6674433-7 (Version None)
Quarter: 2010Q2

REPORT INFORMATION
  Report Type: 
  Country: None (occurrence: None)
  Receive Date: 20100409
  Receipt Date: 20100329
  Transmission Date: 20101027
  Serious: Yes (Other)
  Sender: FDA-Public Use
  Company Number: PHHY2010US20672

PATIENT
  Sex: Male

DRUGS (2)
  1. GLEEVEC [Suspect]
     Indication: CHRONIC MYELOID LEUKAEMIA
     Dosage: 400 MG DAILY
     Route: 048
     Dates: start: 20100129
  2. GLEEVEC [Suspect]
     Dosage: 200 MG DAILY
     Route: 048
     Dates: end: 20100318

REACTIONS (2)
  - CYANOSIS [None]
  - DYSPNOEA [None]
